FAERS Safety Report 6854660-6 (Version None)
Quarter: 2010Q3

REPORT INFORMATION
  Report Type: 
  Country: None (occurrence: None)
  Receive Date: 20100717
  Receipt Date: 20080110
  Transmission Date: 20110219
  Serious: No
  Sender: FDA-Public Use
  Company Number: US-PFIZER INC-2008004132

PATIENT
  Sex: Female
  Weight: 83 kg

DRUGS (11)
  1. CHANTIX [Suspect]
     Indication: SMOKING CESSATION THERAPY
     Dates: start: 20080103
  2. VYTORIN [Concomitant]
  3. OMACOR [Concomitant]
  4. NEXIUM [Concomitant]
  5. ALLEGRA [Concomitant]
  6. CARDIZEM [Concomitant]
  7. LEXAPRO [Concomitant]
  8. MONTELUKAST SODIUM [Concomitant]
  9. ATENOLOL [Concomitant]
  10. TRICOR [Concomitant]
  11. CLORAZEPATE DIPOTASSIUM [Concomitant]

REACTIONS (3)
  - FATIGUE [None]
  - NAUSEA [None]
  - SOMNOLENCE [None]
